FAERS Safety Report 8397695-7 (Version None)
Quarter: 2012Q2

REPORT INFORMATION
  Report Type: 
  Country: None (occurrence: None)
  Receive Date: 20120531
  Receipt Date: 20120521
  Transmission Date: 20120825
  Serious: Yes (Hospitalization)
  Sender: FDA-Public Use
  Company Number: US-CELGENEUS-163-21880-12043195

PATIENT
  Sex: Male
  Weight: 102.1 kg

DRUGS (1)
  1. REVLIMID [Suspect]
     Indication: MULTIPLE MYELOMA
     Dosage: 25 MILLIGRAM
     Route: 048
     Dates: start: 20111220

REACTIONS (3)
  - GOUTY TOPHUS [None]
  - OSTEOMYELITIS [None]
  - CELLULITIS [None]
